FAERS Safety Report 10438310 (Version 3)
Quarter: 2015Q1

REPORT INFORMATION
  Report Type: Spontaneous
  Country: US (occurrence: US)
  Receive Date: 20140908
  Receipt Date: 20150130
  Transmission Date: 20150720
  Serious: Yes (Hospitalization, Other)
  Sender: FDA-Public Use
  Company Number: US-GLAXOSMITHKLINE-A1087514A

PATIENT
  Age: 68 Year
  Sex: Male

DRUGS (10)
  1. POTIGA [Suspect]
     Active Substance: EZOGABINE
     Indication: AMYOTROPHIC LATERAL SCLEROSIS
     Dosage: 200 MG, TID
  2. CITALOPRAM [Concomitant]
     Active Substance: CITALOPRAM HYDROBROMIDE
  3. LORATADINE. [Concomitant]
     Active Substance: LORATADINE
  4. VITAMIN D [Concomitant]
     Active Substance: CHOLECALCIFEROL
  5. VITAMIN B12 [Concomitant]
     Active Substance: CYANOCOBALAMIN
     Dosage: UNK
  6. KCL [Concomitant]
     Active Substance: POTASSIUM CHLORIDE
  7. LOVENOX [Concomitant]
     Active Substance: ENOXAPARIN SODIUM
     Route: 065
  8. LEVAQUIN [Concomitant]
     Active Substance: LEVOFLOXACIN
  9. LASIX [Concomitant]
     Active Substance: FUROSEMIDE
  10. AZTREONAM. [Concomitant]
     Active Substance: AZTREONAM

REACTIONS (3)
  - Urinary retention [Unknown]
  - Off label use [Unknown]
  - Wrong technique in drug usage process [Unknown]
